FAERS Safety Report 23213958 (Version 2)
Quarter: 2023Q4

REPORT INFORMATION
  Report Type: Spontaneous
  Country: CN (occurrence: CN)
  Receive Date: 20231121
  Receipt Date: 20231128
  Transmission Date: 20240109
  Serious: Yes (Other)
  Sender: FDA-Public Use
  Company Number: CN-BAYER-2023A165565

PATIENT
  Age: 53 Year
  Sex: Female
  Weight: 55 kg

DRUGS (1)
  1. MOMETASONE FUROATE [Suspect]
     Active Substance: MOMETASONE FUROATE
     Dosage: 1 G, QD
     Route: 061
     Dates: start: 20231020, end: 20231105

REACTIONS (4)
  - Application site rash [Recovering/Resolving]
  - Respiratory rate increased [Unknown]
  - Scratch [Unknown]
  - Off label use [Unknown]

NARRATIVE: CASE EVENT DATE: 20231020
